FAERS Safety Report 9665365 (Version 1)
Quarter: 2013Q4

REPORT INFORMATION
  Report Type: Spontaneous
  Country: US (occurrence: US)
  Receive Date: 20131104
  Receipt Date: 20131104
  Transmission Date: 20140711
  Serious: No
  Sender: FDA-Public Use
  Company Number: US-009507513-1310USA010205

PATIENT
  Age: 25 Year
  Sex: Female

DRUGS (2)
  1. REBETOL [Suspect]
     Indication: HEPATITIS C
     Dosage: UNK
     Route: 048
     Dates: start: 20131011
  2. PEGINTRON [Suspect]
     Indication: HEPATITIS C
     Dosage: REDIPEN
     Dates: start: 20131011

REACTIONS (6)
  - Restless legs syndrome [Unknown]
  - Muscle spasms [Unknown]
  - Insomnia [Unknown]
  - Nausea [Unknown]
  - Influenza [Unknown]
  - Injection site reaction [Unknown]
